FAERS Safety Report 8877376 (Version 1)
Quarter: 2012Q4

REPORT INFORMATION
  Report Type: Spontaneous
  Country: US (occurrence: None)
  Receive Date: 20121026
  Receipt Date: 20121026
  Transmission Date: 20130627
  Serious: Yes (Death)
  Sender: FDA-Public Use
  Company Number: AXC-2012-000470

PATIENT
  Sex: Male

DRUGS (1)
  1. SOYBEAN [Suspect]
     Indication: DRUG USE FOR UNKNOWN INDICATION
     Dates: end: 201210

REACTIONS (1)
  - Death [None]
